FAERS Safety Report 6072795-5 (Version None)
Quarter: 2009Q1

REPORT INFORMATION
  Report Type: 
  Country: None (occurrence: None)
  Receive Date: 20090205
  Receipt Date: 20090202
  Transmission Date: 20090719
  Serious: Yes (Hospitalization)
  Sender: FDA-Public Use
  Company Number: 2008S1022901

PATIENT
  Age: 54 Year
  Sex: Female
  Weight: 123.832 kg

DRUGS (6)
  1. BYSTOLIC [Suspect]
     Indication: HYPERTENSION
     Dosage: 10 MG;DAILY;ORAL
     Route: 048
     Dates: start: 20080527, end: 20081201
  2. BENICAR [Concomitant]
  3. FLOVENT [Concomitant]
  4. LASIX [Concomitant]
  5. BYETTA [Concomitant]
  6. CELEBREX [Concomitant]

REACTIONS (2)
  - BRADYCARDIA [None]
  - CARDIAC FAILURE [None]
